FAERS Safety Report 22618263 (Version 2)
Quarter: 2024Q4

REPORT INFORMATION
  Report Type: Spontaneous
  Country: US (occurrence: US)
  Receive Date: 20230620
  Receipt Date: 20241226
  Transmission Date: 20250114
  Serious: No
  Sender: HIKMA
  Company Number: US-Hikma Pharmaceuticals USA Inc.-US-H14001-23-01622

PATIENT
  Sex: Female

DRUGS (1)
  1. FLUTICASONE PROPIONATE AND SALMETEROL [Suspect]
     Active Substance: FLUTICASONE PROPIONATE\SALMETEROL XINAFOATE
     Indication: Product used for unknown indication
     Dosage: ONE INHALATION TWICE A DAY
     Route: 048

REACTIONS (1)
  - Product dose omission issue [Unknown]
